FAERS Safety Report 4355988-4 (Version None)
Quarter: 2004Q2

REPORT INFORMATION
  Report Type: 
  Country: None (occurrence: None)
  Receive Date: 20040507
  Receipt Date: 20040507
  Transmission Date: 20050107
  Serious: Yes (Other)
  Sender: FDA-Public Use
  Company Number: None

PATIENT
  Age: 69 Year
  Sex: Male
  Weight: 84.8226 kg

DRUGS (1)
  1. SINGULAIR [Suspect]
     Indication: ASTHMA
     Dosage: PO 1 DAILY
     Route: 048
     Dates: start: 20040301

REACTIONS (3)
  - BLISTER [None]
  - LOCAL SWELLING [None]
  - URTICARIA [None]
